FAERS Safety Report 6670810-9 (Version None)
Quarter: 2010Q2

REPORT INFORMATION
  Report Type: 
  Country: None (occurrence: None)
  Receive Date: 20100406
  Receipt Date: 20100406
  Transmission Date: 20101027
  Serious: Yes (Death)
  Sender: FDA-Public Use
  Company Number: None

PATIENT
  Sex: Male
  Weight: 106 kg

DRUGS (2)
  1. ENOXAPARIN SODIUM [Suspect]
     Indication: PULMONARY EMBOLISM
     Dosage: 120 MG BID SQ
     Route: 058
     Dates: start: 20100316, end: 20100318
  2. WARFARIN SODIUM [Suspect]
     Dosage: 10 MG DAILY PO
     Route: 048
     Dates: start: 20100317, end: 20100318

REACTIONS (6)
  - BRAIN MIDLINE SHIFT [None]
  - BRAIN OEDEMA [None]
  - HAEMORRHAGE INTRACRANIAL [None]
  - HEADACHE [None]
  - MENTAL STATUS CHANGES [None]
  - PULMONARY EMBOLISM [None]
